FAERS Safety Report 11150882 (Version 1)
Quarter: 2015Q2

REPORT INFORMATION
  Report Type: Spontaneous
  Country: GB (occurrence: None)
  Receive Date: 20150528
  Receipt Date: 20150528
  Transmission Date: 20150821
  Serious: Yes (Death, Other)
  Sender: FDA-Public Use
  Company Number: FK201502401

PATIENT
  Age: 23 Month
  Sex: Female

DRUGS (2)
  1. CARBOPLATIN (MANUFACTURER UNKNOWN) (CARBOPLATIN) (CARBOPLATIN) [Suspect]
     Active Substance: CARBOPLATIN
     Indication: RHABDOID TUMOUR
     Route: 042
     Dates: start: 20150401, end: 20150403
  2. THIOTEPA (THIOTEPA) [Suspect]
     Active Substance: THIOTEPA
     Indication: RHABDOID TUMOUR
     Route: 042
     Dates: start: 20150401, end: 20150403

REACTIONS (2)
  - Sepsis [None]
  - Systemic candida [None]

NARRATIVE: CASE EVENT DATE: 20150424
